FAERS Safety Report 23255761 (Version 1)
Quarter: 2023Q4

REPORT INFORMATION
  Report Type: Spontaneous
  Country: US (occurrence: US)
  Receive Date: 20231204
  Receipt Date: 20231204
  Transmission Date: 20240110
  Serious: No
  Sender: FDA-Public Use
  Company Number: US-IBSA PHARMA INC.-2023IBS000757

PATIENT

DRUGS (6)
  1. TIROSINT [Suspect]
     Active Substance: LEVOTHYROXINE SODIUM
     Indication: Graves^ disease
     Dosage: 100 MICROGRAM
     Route: 065
  2. TIROSINT [Suspect]
     Active Substance: LEVOTHYROXINE SODIUM
     Indication: Hypothyroidism
     Dosage: 88 MICROGRAM
     Route: 065
  3. LIOTHYRONINE [Suspect]
     Active Substance: LIOTHYRONINE
     Indication: Graves^ disease
     Dosage: 5 MICROGRAM
     Route: 065
  4. LIOTHYRONINE [Suspect]
     Active Substance: LIOTHYRONINE
     Indication: Hypothyroidism
  5. BACTRIM [Concomitant]
     Active Substance: SULFAMETHOXAZOLE\TRIMETHOPRIM
     Indication: Urinary tract infection
     Dosage: 1000 UNK, BID
     Route: 065
  6. AMOXICILLIN [Concomitant]
     Active Substance: AMOXICILLIN
     Indication: Urinary tract infection
     Dosage: 2400 MILLIGRAM, TID
     Route: 065

REACTIONS (17)
  - Decreased appetite [Unknown]
  - Dyskinesia [Unknown]
  - Asthenia [Unknown]
  - Fibromyalgia [Unknown]
  - Agitation [Unknown]
  - Dizziness [Unknown]
  - Heart rate increased [Unknown]
  - Dyspnoea [Unknown]
  - Temperature intolerance [Unknown]
  - Hyperhidrosis [Unknown]
  - Fatigue [Unknown]
  - Irritability [Unknown]
  - Nervousness [Unknown]
  - Tremor [Unknown]
  - Palpitations [Unknown]
  - Headache [Unknown]
  - Psychomotor hyperactivity [Unknown]
